FAERS Safety Report 17399886 (Version 1)
Quarter: 2020Q1

REPORT INFORMATION
  Report Type: Spontaneous
  Country: DK (occurrence: DK)
  Receive Date: 20200211
  Receipt Date: 20200211
  Transmission Date: 20200409
  Serious: Yes (Death, Life-Threatening, Hospitalization)
  Sender: FDA-Public Use
  Company Number: DK-TEVA-2020-DK-1184129

PATIENT
  Age: 77 Year
  Sex: Male

DRUGS (12)
  1. MAGNESIA ^MEDIC^ [Concomitant]
     Indication: CONSTIPATION
     Dosage: STRENGTH: 500 MG?EARLIER DOSE 1000 MG TWICE DAILY UNTIL JULY 2019
     Route: 048
     Dates: start: 20190122
  2. CONTALGIN [Concomitant]
     Active Substance: MORPHINE SULFATE
     Indication: PAIN
     Dosage: STRENGTH: 10 MG?20 MG
     Route: 048
     Dates: start: 20190703
  3. MORPHINE [Concomitant]
     Active Substance: MORPHINE
     Indication: PAIN
     Dosage: STRENGTH: 10 MG?DOSAGE: 10 MG DAILY, 5 MG AS NEEDED.
     Route: 048
     Dates: start: 20190116
  4. PANODIL [Concomitant]
     Active Substance: ACETAMINOPHEN
     Indication: PAIN
     Dosage: STRENGTH: 500 MG AND 665 MG?DOSE VARIATION
     Route: 048
  5. IBUPROFEN. [Suspect]
     Active Substance: IBUPROFEN
     Indication: PAIN
     Dosage: STRENGTH: 400 MG?DOSAGE: IF NEEDED, 400 MG AT MOST 3 TIMES DAILY
     Route: 048
     Dates: start: 20200108
  6. LUMIGAN [Concomitant]
     Active Substance: BIMATOPROST
     Indication: GLAUCOMA
     Dosage: STRENGTH: 0.1 MG / ML, 1GTT
     Route: 050
     Dates: start: 20190703
  7. MADOPAR ^125^ [Concomitant]
     Indication: PARKINSON^S DISEASE
     Dosage: STRENGTH: 100 + 25MG?DOSAGE: 2 + 1, 5 + 1, 5 + 1, 5
     Route: 048
     Dates: start: 20190912
  8. FOTIL [Concomitant]
     Indication: GLAUCOMA
     Dosage: STRENGTH: 20+5 MG/ML
     Route: 050
     Dates: start: 20190703
  9. PANTOPRAZOLE [Concomitant]
     Active Substance: PANTOPRAZOLE
     Indication: GASTROOESOPHAGEAL REFLUX DISEASE
     Dosage: STRENGTH: 20 + 40 MG?DOSAGE: BEFORE 22JAN2019 20 MG DAILY
     Route: 048
     Dates: start: 20160114
  10. ANCOZAN [Concomitant]
     Active Substance: LOSARTAN POTASSIUM
     Indication: HYPERTENSION
     Dosage: STRENGTH: 100 MG
     Route: 048
     Dates: start: 20190705
  11. UNIKALK MED D-VITAMIN [Concomitant]
     Indication: VITAMIN SUPPLEMENTATION
     Dosage: STRENGTH: 400 MG + 19 MICROGRAMS, 2 DOSAGE FORMS
     Route: 048
     Dates: start: 20190119
  12. VITAMIN SUPPLEMENT [Concomitant]
     Active Substance: VITAMINS
     Indication: VITAMIN SUPPLEMENTATION
     Dosage: STRENGTH UNKNOWN?DOSAGE UNKNOWN
     Route: 048
     Dates: start: 20190704

REACTIONS (4)
  - Cerebral haemorrhage [Fatal]
  - Intraventricular haemorrhage [Fatal]
  - Brain herniation [Fatal]
  - Brain midline shift [Fatal]

NARRATIVE: CASE EVENT DATE: 20200122
